FAERS Safety Report 4950362-1 (Version None)
Quarter: 2006Q1

REPORT INFORMATION
  Report Type: 
  Country: None (occurrence: None)
  Receive Date: 20060322
  Receipt Date: 20060307
  Transmission Date: 20060701
  Serious: Yes (Other)
  Sender: FDA-Public Use
  Company Number: PHEH2006US03101

PATIENT
  Sex: Female

DRUGS (3)
  1. ACTONEL [Concomitant]
     Dates: start: 20010101
  2. DESFERAL [Suspect]
     Indication: BLOOD IRON INCREASED
     Route: 058
     Dates: start: 20011101
  3. DESFERAL [Suspect]
     Route: 042

REACTIONS (5)
  - ABDOMINAL DISCOMFORT [None]
  - BACK PAIN [None]
  - FRACTURE [None]
  - OSTEOPOROSIS [None]
  - RASH [None]
